FAERS Safety Report 10633521 (Version 2)
Quarter: 2015Q1

REPORT INFORMATION
  Report Type: Spontaneous
  Country: US (occurrence: US)
  Receive Date: 20141205
  Receipt Date: 20150114
  Transmission Date: 20150720
  Serious: Yes (Other)
  Sender: FDA-Public Use
  Company Number: US-ASTELLAS-2014US018875

PATIENT
  Sex: Male

DRUGS (1)
  1. XTANDI [Suspect]
     Active Substance: ENZALUTAMIDE
     Indication: REFRACTORY CANCER
     Route: 065
     Dates: start: 20140918

REACTIONS (2)
  - No therapeutic response [Unknown]
  - Malignant neoplasm progression [Unknown]
